FAERS Safety Report 22068685 (Version 2)
Quarter: 2023Q1

REPORT INFORMATION
  Report Type: Other
  Country: DE (occurrence: None)
  Receive Date: 20230307
  Receipt Date: 20230329
  Transmission Date: 20230418
  Serious: No
  Sender: FDA-Public Use
  Company Number: DE-ROCHE-3301521

PATIENT
  Age: 36 Year
  Sex: Female

DRUGS (11)
  1. OCRELIZUMAB [Suspect]
     Active Substance: OCRELIZUMAB
     Indication: Relapsing multiple sclerosis
     Dosage: THEN 600 MG EVERY 6 MONTHS?FREQUENCY: ONCE
     Route: 042
     Dates: start: 20220712
  2. OCRELIZUMAB [Suspect]
     Active Substance: OCRELIZUMAB
     Dosage: FREQUENCY: ONCE
     Route: 042
     Dates: start: 20230301
  3. METHYLPREDNISOLONE [Concomitant]
     Active Substance: METHYLPREDNISOLONE
     Dosage: DOSE FREQUENCY: ONCE
     Route: 042
     Dates: start: 20220712, end: 20220712
  4. DIMETHINDENE MALEATE [Concomitant]
     Active Substance: DIMETHINDENE MALEATE
     Dosage: DOSE FREQUENCY: ONCE
     Route: 042
     Dates: start: 20220712, end: 20220712
  5. DIMETHINDENE MALEATE [Concomitant]
     Active Substance: DIMETHINDENE MALEATE
     Dosage: DOSE FREQUENCY: ONCE
     Route: 042
     Dates: start: 20220726, end: 20220726
  6. DIMETHINDENE MALEATE [Concomitant]
     Active Substance: DIMETHINDENE MALEATE
     Dosage: DOSE FREQUENCY: ONCE
     Route: 042
     Dates: start: 20230301, end: 20230301
  7. ACETAMINOPHEN [Concomitant]
     Active Substance: ACETAMINOPHEN
     Dosage: DOSE FREQUENCY: ONCE
     Route: 048
     Dates: start: 20220712, end: 20220712
  8. ACETAMINOPHEN [Concomitant]
     Active Substance: ACETAMINOPHEN
     Dosage: DOSE FREQUENCY: ONCE
     Route: 048
     Dates: start: 20220726, end: 20220726
  9. ACETAMINOPHEN [Concomitant]
     Active Substance: ACETAMINOPHEN
     Dosage: DOSE FREQUENCY: ONCE
     Route: 048
     Dates: start: 20230301, end: 20230301
  10. METHYLPREDNISOLONE [Concomitant]
     Active Substance: METHYLPREDNISOLONE
     Dosage: DOSE FREQUENCY: ONCE
     Route: 042
     Dates: start: 20220726, end: 20220726
  11. METHYLPREDNISOLONE [Concomitant]
     Active Substance: METHYLPREDNISOLONE
     Dosage: DOSE FREQUENCY: ONCE
     Route: 042
     Dates: start: 20230301, end: 20230301

REACTIONS (1)
  - Influenza [Recovered/Resolved]

NARRATIVE: CASE EVENT DATE: 20230124
